FAERS Safety Report 21856926 (Version 3)
Quarter: 2023Q1

REPORT INFORMATION
  Report Type: Report from Study
  Country: CO (occurrence: CO)
  Receive Date: 20230113
  Receipt Date: 20230307
  Transmission Date: 20230418
  Serious: Yes (Hospitalization)
  Sender: FDA-Public Use
  Company Number: CO-ABBVIE-4208895

PATIENT
  Age: 65 Year
  Sex: Female

DRUGS (2)
  1. VENCLEXTA [Suspect]
     Active Substance: VENETOCLAX
     Indication: Acute myeloid leukaemia
     Dosage: STRENGTH- 100MG
     Route: 048
     Dates: start: 20220803, end: 20230119
  2. AZACITIDINE [Concomitant]
     Active Substance: AZACITIDINE
     Indication: Product used for unknown indication
     Dates: start: 20230126

REACTIONS (17)
  - Intra-abdominal haematoma [Unknown]
  - Malaise [Unknown]
  - Haematoma muscle [Unknown]
  - Investigation abnormal [Unknown]
  - Weight decreased [Unknown]
  - Mass [Unknown]
  - Abdominal discomfort [Unknown]
  - Pyrexia [Unknown]
  - Illness [Unknown]
  - Inflammation [Unknown]
  - Abdominal pain upper [Unknown]
  - Musculoskeletal disorder [Unknown]
  - Tendon pain [Unknown]
  - Haemorrhage [Unknown]
  - General symptom [Unknown]
  - Toxicity to various agents [Unknown]
  - Visual impairment [Unknown]

NARRATIVE: CASE EVENT DATE: 20221101
